FAERS Safety Report 4453534-8 (Version None)
Quarter: 2004Q3

REPORT INFORMATION
  Report Type: 
  Country: None (occurrence: None)
  Receive Date: 20040920
  Receipt Date: 20040908
  Transmission Date: 20050211
  Serious: Yes (Hospitalization, Other)
  Sender: FDA-Public Use
  Company Number: FR-JNJFOC-20040405765

PATIENT
  Age: 60 Year
  Sex: Male
  Weight: 60 kg

DRUGS (9)
  1. REMICADE [Suspect]
     Indication: RHEUMATOID ARTHRITIS
     Route: 042
  2. NOVATREX [Suspect]
     Indication: RHEUMATOID ARTHRITIS
     Route: 049
  3. FOLIC ACID [Concomitant]
     Indication: RHEUMATOID ARTHRITIS
     Route: 049
  4. CORTANCYL [Concomitant]
     Indication: RHEUMATOID ARTHRITIS
     Route: 049
  5. PRAZOSIN HCL [Concomitant]
     Route: 049
  6. ATACAND [Concomitant]
     Route: 049
  7. ARAVA [Concomitant]
     Route: 049
  8. FOSAMAX [Concomitant]
     Route: 049
  9. ACETAMINOPHEN [Concomitant]

REACTIONS (1)
  - HODGKIN'S DISEASE MIXED CELLULARITY STAGE III [None]
